FAERS Safety Report 8089145-5 (Version None)
Quarter: 2012Q1

REPORT INFORMATION
  Report Type: 
  Country: None (occurrence: None)
  Receive Date: 20120128
  Receipt Date: 20110629
  Transmission Date: 20120608
  Serious: No
  Sender: FDA-Public Use
  Company Number: US-ABBOTT-11P-163-0731425-00

PATIENT
  Sex: Female
  Weight: 79.45 kg

DRUGS (17)
  1. TRAZODONE HCL [Concomitant]
     Indication: DEPRESSION
     Dates: start: 20010101
  2. LEVOTHYROXINE SODIUM [Concomitant]
     Indication: HYPOTHYROIDISM
     Route: 048
     Dates: start: 19950101
  3. CLOBETASOL [Concomitant]
     Indication: PSORIASIS
  4. DOVONEX [Concomitant]
     Indication: PSORIASIS
  5. CITALOPRAM [Concomitant]
     Indication: DEPRESSION
     Route: 048
     Dates: start: 20010101
  6. METHOTREXATE [Concomitant]
     Indication: RHEUMATOID ARTHRITIS
     Route: 048
     Dates: start: 20010101
  7. OMEPRAZOLE [Concomitant]
     Indication: PRODUCT USED FOR UNKNOWN INDICATION
     Route: 048
     Dates: start: 20030101
  8. FOLIC ACID [Concomitant]
     Indication: PRODUCT USED FOR UNKNOWN INDICATION
     Route: 048
  9. TRAZODONE HCL [Concomitant]
     Indication: SLEEP DISORDER THERAPY
  10. VALTREX [Concomitant]
     Indication: HERPES SIMPLEX
  11. ZOVAREX [Concomitant]
     Indication: PRODUCT USED FOR UNKNOWN INDICATION
  12. BACTROBAN [Concomitant]
     Indication: IMPETIGO
  13. HUMIRA [Suspect]
     Indication: RHEUMATOID ARTHRITIS
     Route: 058
     Dates: start: 20070101
  14. LIPITOR [Concomitant]
     Indication: PRODUCT USED FOR UNKNOWN INDICATION
     Route: 048
  15. TYLENOL W/ CODEINE NO. 3 [Concomitant]
     Indication: PRODUCT USED FOR UNKNOWN INDICATION
  16. DOCUSATE SODIUM [Concomitant]
     Indication: PRODUCT USED FOR UNKNOWN INDICATION
  17. VALACYCLOVIR [Concomitant]
     Indication: HERPES VIRUS INFECTION

REACTIONS (9)
  - NEUROPATHY PERIPHERAL [None]
  - PARAESTHESIA [None]
  - SJOGREN'S SYNDROME [None]
  - DRY MOUTH [None]
  - PAIN IN EXTREMITY [None]
  - CONTUSION [None]
  - REGURGITATION [None]
  - FALL [None]
  - DRY EYE [None]
